FAERS Safety Report 6761688-3 (Version None)
Quarter: 2010Q2

REPORT INFORMATION
  Report Type: 
  Country: None (occurrence: None)
  Receive Date: 20100520
  Receipt Date: 20100514
  Transmission Date: 20101027
  Serious: Yes (Life-Threatening, Hospitalization)
  Sender: FDA-Public Use
  Company Number: 2010022455

PATIENT
  Sex: Male

DRUGS (17)
  1. HAEMATE P (FACTOR VIII (ANTIHAEMOPHILIC FACTOR)) [Suspect]
     Indication: IMMUNOSUPPRESSANT DRUG THERAPY
     Dosage: 3000 IU, 20 ML / MIN, 3000 IU, 3000, INTRAVENOUS (NOT OTHERWISE SPECIFIED)
     Route: 042
     Dates: start: 20070725
  2. HAEMATE P (FACTOR VIII (ANTIHAEMOPHILIC FACTOR)) [Suspect]
  3. HAEMATE P (FACTOR VIII (ANTIHAEMOPHILIC FACTOR)) [Suspect]
  4. HAEMATE P (FACTOR VIII (ANTIHAEMOPHILIC FACTOR)) [Suspect]
  5. HAEMATE P (FACTOR VIII (ANTIHAEMOPHILIC FACTOR)) [Suspect]
  6. HAEMATE P (FACTOR VIII (ANTIHAEMOPHILIC FACTOR)) [Suspect]
  7. HAEMATE P (FACTOR VIII (ANTIHAEMOPHILIC FACTOR)) [Suspect]
  8. HAEMATE P (FACTOR VIII (ANTIHAEMOPHILIC FACTOR)) [Suspect]
  9. FEIBA [Suspect]
     Dates: start: 20070725
  10. FEIBA [Suspect]
     Dates: start: 20070905
  11. FEIBA [Suspect]
     Dates: start: 20080621
  12. FEIBA [Suspect]
     Dates: start: 20080819
  13. NOVOSEVEN [Suspect]
     Dates: start: 20090216
  14. NOVOSEVEN [Suspect]
     Dates: start: 20090223
  15. NOVOSEVEN [Suspect]
     Dates: start: 20090411
  16. FEIBA [Concomitant]
  17. NOVOSEVEN /01034101/ (FACTOR VII (PROCONVERTIN)) [Concomitant]

REACTIONS (3)
  - ENDOCARDITIS [None]
  - HAEMARTHROSIS [None]
  - HAEMATOMA [None]
